FAERS Safety Report 4290800-3 (Version None)
Quarter: 2004Q1

REPORT INFORMATION
  Report Type: 
  Country: None (occurrence: None)
  Receive Date: 20040206
  Receipt Date: 20040206
  Transmission Date: 20041129
  Serious: No
  Sender: FDA-Public Use
  Company Number: None

PATIENT
  Sex: Female
  Weight: 51.5 kg

DRUGS (1)
  1. NAFCILLIN SODIUM [Suspect]
     Indication: ENDOCARDITIS
     Dosage: 2 GM IV Q 4 HR
     Route: 042

REACTIONS (1)
  - RASH PRURITIC [None]
